FAERS Safety Report 7938889-1 (Version None)
Quarter: 2011Q4

REPORT INFORMATION
  Report Type: 
  Country: None (occurrence: None)
  Receive Date: 20111124
  Receipt Date: 20111115
  Transmission Date: 20120403
  Serious: Yes (Other)
  Sender: FDA-Public Use
  Company Number: CA-RANBAXY-2011US-50546

PATIENT
  Age: 51 Year
  Sex: Male

DRUGS (3)
  1. PAROXETINE HCL [Concomitant]
     Indication: PRODUCT USED FOR UNKNOWN INDICATION
     Dosage: UNK,UNK
     Route: 065
  2. RISPERIDONE [Suspect]
     Indication: AGITATED DEPRESSION
     Dosage: 3 MG, UNK, DAILY
     Route: 065
  3. WARFARIN SODIUM [Concomitant]
     Indication: PRODUCT USED FOR UNKNOWN INDICATION
     Dosage: UNK,UNK
     Route: 065

REACTIONS (6)
  - DECREASED APPETITE [None]
  - DEPRESSIVE SYMPTOM [None]
  - INSOMNIA [None]
  - TARDIVE DYSKINESIA [None]
  - AGITATION [None]
  - SUICIDAL IDEATION [None]
